FAERS Safety Report 12329485 (Version 1)
Quarter: 2016Q2

REPORT INFORMATION
  Report Type: Spontaneous
  Country: CN (occurrence: CN)
  Receive Date: 20160503
  Receipt Date: 20160503
  Transmission Date: 20160815
  Serious: Yes (Hospitalization)
  Sender: FDA-Public Use
  Company Number: CN-GLAXOSMITHKLINE-CN2016GSK061544

PATIENT
  Age: 31 Year
  Sex: Male
  Weight: 70 kg

DRUGS (1)
  1. VOLTAREN [Suspect]
     Active Substance: DICLOFENAC SODIUM
     Indication: NEURALGIA
     Dosage: 75 MG, BID
     Route: 048
     Dates: start: 20151216, end: 20151218

REACTIONS (1)
  - Nephropathy [Recovered/Resolved]

NARRATIVE: CASE EVENT DATE: 20151218
